FAERS Safety Report 14215872 (Version 1)
Quarter: 2017Q4

REPORT INFORMATION
  Report Type: Report from Study
  Country: US (occurrence: US)
  Receive Date: 20171122
  Receipt Date: 20171122
  Transmission Date: 20180321
  Serious: Yes (Death, Hospitalization)
  Sender: FDA-Public Use
  Company Number: US-ROCHE-2010394

PATIENT
  Age: 80 Year
  Sex: Male
  Weight: 75 kg

DRUGS (5)
  1. BEVACIZUMAB. [Suspect]
     Active Substance: BEVACIZUMAB
     Indication: PHARYNGEAL CANCER
     Route: 042
     Dates: start: 20040406, end: 20040504
  2. VALSARTAN. [Concomitant]
     Active Substance: VALSARTAN
  3. METHYLPREDNISOLONE. [Concomitant]
     Active Substance: METHYLPREDNISOLONE
  4. OXYCODONE HYDROCHLORIDE. [Concomitant]
     Active Substance: OXYCODONE HYDROCHLORIDE
  5. ERLOTINIB [Suspect]
     Active Substance: ERLOTINIB
     Indication: PHARYNGEAL CANCER
     Route: 048
     Dates: start: 20040406, end: 20040525

REACTIONS (5)
  - Pneumonia [Fatal]
  - Weight decreased [Unknown]
  - Failure to thrive [Unknown]
  - Bone pain [Unknown]
  - Decreased appetite [Unknown]

NARRATIVE: CASE EVENT DATE: 20040522
